FAERS Safety Report 23888318 (Version 12)
Quarter: 2025Q4

REPORT INFORMATION
  Report Type: Spontaneous
  Country: EU (occurrence: EU)
  Receive Date: 20240523
  Receipt Date: 20251218
  Transmission Date: 20260118
  Serious: Yes (Hospitalization, Other)
  Sender: NOVARTIS
  Company Number: EU-ROCHE-3096753

PATIENT
  Age: 38 Year
  Sex: Female
  Weight: 61 kg

DRUGS (31)
  1. KESIMPTA [Suspect]
     Active Substance: OFATUMUMAB
     Indication: Relapsing multiple sclerosis
     Dosage: 20 MG, QMO
     Route: 058
     Dates: start: 20240307
  2. KESIMPTA [Suspect]
     Active Substance: OFATUMUMAB
     Dosage: 20 MG, QMO
     Route: 058
     Dates: start: 20240307
  3. OCREVUS [Suspect]
     Active Substance: OCRELIZUMAB
     Indication: Relapsing multiple sclerosis
     Dosage: 300 MG, Q2W
     Route: 042
     Dates: start: 20190220, end: 20190307
  4. OCREVUS [Suspect]
     Active Substance: OCRELIZUMAB
     Dosage: 600 MG (6 MONTH)
     Route: 042
     Dates: start: 20190916, end: 20220120
  5. OCREVUS [Suspect]
     Active Substance: OCRELIZUMAB
     Dosage: 600 MG (6 MONTH)
     Route: 042
     Dates: start: 20230130, end: 20230801
  6. OCREVUS [Suspect]
     Active Substance: OCRELIZUMAB
     Dosage: 600 MG (6 MONTHS)
     Route: 042
     Dates: start: 20230130, end: 20230801
  7. CHLORMADINONE ACETATE\ETHINYL ESTRADIOL [Concomitant]
     Active Substance: CHLORMADINONE ACETATE\ETHINYL ESTRADIOL
     Indication: Contraception
     Dosage: UNK UNK, QD
     Route: 048
     Dates: start: 201805
  8. DIMETHINDENE MALEATE [Concomitant]
     Active Substance: DIMETHINDENE MALEATE
     Indication: Premedication
     Dosage: 1 MG, BIW
     Route: 042
     Dates: start: 20190220, end: 20190307
  9. DIMETHINDENE MALEATE [Concomitant]
     Active Substance: DIMETHINDENE MALEATE
     Dosage: 1 MG, (6 MONTHS), (END DATE IS ONGOING)
     Route: 042
     Dates: start: 20190916
  10. PREDNISOLONE [Concomitant]
     Active Substance: PREDNISOLONE
     Indication: Premedication
     Dosage: 125 MG, Q2W
     Route: 042
     Dates: start: 20190220, end: 20190307
  11. PREDNISOLONE [Concomitant]
     Active Substance: PREDNISOLONE
     Dosage: 125 MG, 6 MONTHS
     Route: 042
     Dates: start: 20190916
  12. DEQUALINIUM CHLORIDE [Concomitant]
     Active Substance: DEQUALINIUM CHLORIDE
     Indication: Bacterial vaginosis
     Dosage: 10 MG, QW
     Route: 067
     Dates: start: 20210609, end: 202107
  13. IBUPROFEN [Concomitant]
     Active Substance: IBUPROFEN
     Indication: Headache
     Dosage: 600 MG
     Route: 048
     Dates: start: 201703
  14. ACETAMINOPHEN [Concomitant]
     Active Substance: ACETAMINOPHEN
     Indication: Influenza
     Dosage: 500 MG, PRN  (DEFINITION OF THE INTERVAL: AS REQUIRED)
     Route: 048
     Dates: start: 20190307
  15. ACETAMINOPHEN [Concomitant]
     Active Substance: ACETAMINOPHEN
     Indication: Pyrexia
     Dosage: 500 MG, PRN (AS NECESSARY)
     Route: 048
     Dates: start: 202411
  16. ACETAMINOPHEN [Concomitant]
     Active Substance: ACETAMINOPHEN
     Indication: Influenza like illness
     Dosage: 500 MG, PRN(AS NECESSARY)
     Route: 048
     Dates: start: 20250222, end: 20250307
  17. DONTISOLON [Concomitant]
     Indication: Gingivitis
     Dosage: UNK, QD (TOPICAL)
     Route: 050
     Dates: start: 20191029, end: 20191111
  18. CHOLECALCIFEROL [Concomitant]
     Active Substance: CHOLECALCIFEROL
     Indication: Vitamin D deficiency
     Dosage: UNK, QW (20000 IU, END DATE IS ONGOING)
     Route: 048
     Dates: start: 20150203
  19. PANTOPRAZOLE SODIUM [Concomitant]
     Active Substance: PANTOPRAZOLE SODIUM
     Indication: Product used for unknown indication
     Dosage: 40 MG, QD
     Route: 048
     Dates: start: 20240402
  20. TILIDINE [Concomitant]
     Active Substance: TILIDINE
     Indication: Product used for unknown indication
     Dosage: DEFINITION OF THE INTERVAL: AS REQUIRED
     Route: 048
     Dates: start: 20240402
  21. Comirnaty [Concomitant]
     Indication: COVID-19 prophylaxis
     Dosage: 0.03 MG, QD
     Route: 030
     Dates: start: 20210226, end: 20210226
  22. Comirnaty [Concomitant]
     Dosage: 0.03 MG, QD
     Route: 030
     Dates: start: 20210320, end: 20210320
  23. Comirnaty [Concomitant]
     Dosage: 0.03 MG, QD
     Route: 030
     Dates: start: 20210427, end: 20210427
  24. Comirnaty [Concomitant]
     Dosage: 0.03 MG, QD
     Route: 030
     Dates: start: 20220919, end: 20220919
  25. SPIKEVAX [Concomitant]
     Active Substance: CX-046684
     Indication: COVID-19 prophylaxis
     Dosage: 0.1 MG, QD
     Route: 030
     Dates: start: 20211215, end: 20211215
  26. DIMETHINDENE MALEATE [Concomitant]
     Active Substance: DIMETHINDENE MALEATE
     Indication: Premedication
     Dosage: 1 MG, Q2W
     Route: 042
     Dates: start: 20190220, end: 20190307
  27. DIMETHINDENE MALEATE [Concomitant]
     Active Substance: DIMETHINDENE MALEATE
     Dosage: 1 MG (6 MONTH)
     Route: 042
     Dates: start: 20190916
  28. SPIRONOLACTONE [Concomitant]
     Active Substance: SPIRONOLACTONE
     Indication: Acne
     Dosage: UNK, PRN, AS NECESSARY
     Route: 065
     Dates: start: 20250124, end: 20250131
  29. INFLUVAC TETRA [Concomitant]
     Active Substance: INFLUENZA VIRUS VACCINE QUADRIVALENT TYPE A+B
     Indication: Antiviral prophylaxis
     Dosage: 60 UG, QD
     Route: 030
     Dates: start: 20211215, end: 20211215
  30. GABAPENTIN [Concomitant]
     Active Substance: GABAPENTIN
     Indication: Arthralgia
     Dosage: 100 MG, PRN, AS NECESSARY
     Route: 048
     Dates: start: 20250410, end: 20250412
  31. CORTISONE [Concomitant]
     Active Substance: CORTISONE
     Indication: Sudden hearing loss
     Dosage: UNK, PRN, AS NECESSARY
     Route: 065
     Dates: start: 20250219, end: 20250310

REACTIONS (14)
  - Pneumonia [Not Recovered/Not Resolved]
  - Pneumonia [Not Recovered/Not Resolved]
  - Pneumonia [Recovered/Resolved]
  - Bronchitis [Not Recovered/Not Resolved]
  - Rib fracture [Recovered/Resolved]
  - Rhinitis [Recovered/Resolved]
  - Influenza like illness [Recovered/Resolved]
  - Influenza like illness [Recovered/Resolved]
  - Respiratory tract infection [Recovered/Resolved]
  - COVID-19 [Recovered/Resolved]
  - SARS-CoV-2 antibody test negative [Not Recovered/Not Resolved]
  - Influenza [Not Recovered/Not Resolved]
  - Pyrexia [Not Recovered/Not Resolved]
  - Pneumonia [Not Recovered/Not Resolved]

NARRATIVE: CASE EVENT DATE: 20220107
